FAERS Safety Report 7501913-4 (Version None)
Quarter: 2011Q2

REPORT INFORMATION
  Report Type: 
  Country: None (occurrence: None)
  Receive Date: 20110523
  Receipt Date: 20110523
  Transmission Date: 20111010
  Serious: Yes (Other)
  Sender: FDA-Public Use
  Company Number: None

PATIENT
  Sex: Female
  Weight: 56.6996 kg

DRUGS (1)
  1. RECLAST [Suspect]
     Indication: BONE DENSITY ABNORMAL
     Dosage: INJECTION AMOUNT
     Dates: start: 20110427

REACTIONS (4)
  - PAIN [None]
  - BACK DISORDER [None]
  - HYPOAESTHESIA [None]
  - MUSCLE TIGHTNESS [None]
